FAERS Safety Report 10159158 (Version 2)
Quarter: 2014Q2

REPORT INFORMATION
  Report Type: Spontaneous
  Country: VN (occurrence: VN)
  Receive Date: 20140508
  Receipt Date: 20140521
  Transmission Date: 20141212
  Serious: No
  Sender: FDA-Public Use
  Company Number: VN-009507513-1405VNM004098

PATIENT
  Age: 63 Year
  Sex: Male

DRUGS (1)
  1. JANUMET 50MG/500MG [Suspect]
     Indication: DIABETES MELLITUS
     Dosage: STRENGTH 500MG, 2 TABLET/DAY
     Route: 048
     Dates: start: 20140325

REACTIONS (3)
  - Blood glucose decreased [Unknown]
  - Anxiety [Unknown]
  - Feeling abnormal [Unknown]
